FAERS Safety Report 20488652 (Version 1)
Quarter: 2022Q1

REPORT INFORMATION
  Report Type: Spontaneous
  Country: TW (occurrence: TW)
  Receive Date: 20220218
  Receipt Date: 20220218
  Transmission Date: 20220423
  Serious: No
  Sender: FDA-Public Use
  Company Number: TW-LUPIN PHARMACEUTICALS INC.-2022-02161

PATIENT
  Age: 73 Year
  Sex: Male

DRUGS (3)
  1. LINEZOLID [Suspect]
     Active Substance: LINEZOLID
     Indication: Mycobacterial infection
     Dosage: UNK
     Route: 048
  2. PEGASYS [Concomitant]
     Active Substance: PEGINTERFERON ALFA-2A
     Indication: Kaposi^s sarcoma classical type
     Dosage: 45 MICROGRAM WEEKLY (RECEIVED LOW DOSE THERAPY)
     Route: 058
  3. PEGASYS [Concomitant]
     Active Substance: PEGINTERFERON ALFA-2A
     Dosage: 45 MICROGRAM, 2 WEEKLY RECEIVED LOW DOSE THERAPY
     Route: 058

REACTIONS (1)
  - Anaemia [Recovered/Resolved]
